FAERS Safety Report 9276637 (Version 1)
Quarter: 2013Q2

REPORT INFORMATION
  Report Type: Spontaneous
  Country: GB (occurrence: GB)
  Receive Date: 20130507
  Receipt Date: 20130507
  Transmission Date: 20140414
  Serious: Yes (Hospitalization)
  Sender: FDA-Public Use
  Company Number: PHHY2013GB039738

PATIENT
  Age: 24 Year
  Sex: Female

DRUGS (3)
  1. VALPROIC ACID [Suspect]
     Dosage: 1000 MG/DAY
  2. OLANZAPINE [Suspect]
     Dosage: 10 MG/DAY
  3. OLANZAPINE [Suspect]
     Dosage: 20 MG/DAY

REACTIONS (7)
  - Mania [Recovering/Resolving]
  - Speech disorder [Recovering/Resolving]
  - Delusion of grandeur [Recovering/Resolving]
  - Delusion [Recovering/Resolving]
  - Irritability [Recovering/Resolving]
  - Maternal exposure during pregnancy [Unknown]
  - Prolonged pregnancy [Unknown]
